FAERS Safety Report 13614960 (Version 2)
Quarter: 2017Q2

REPORT INFORMATION
  Report Type: Spontaneous
  Country: FR (occurrence: FR)
  Receive Date: 20170606
  Receipt Date: 20170622
  Transmission Date: 20170830
  Serious: Yes (Hospitalization)
  Sender: FDA-Public Use
  Company Number: FR-ROCHE-1941981

PATIENT
  Age: 52 Year
  Sex: Female

DRUGS (9)
  1. OXYCONTIN [Concomitant]
     Active Substance: OXYCODONE HYDROCHLORIDE
  2. LEVOTHYROX [Concomitant]
     Active Substance: LEVOTHYROXINE
  3. LYRICA [Concomitant]
     Active Substance: PREGABALIN
  4. XELODA [Suspect]
     Active Substance: CAPECITABINE
     Indication: RECTAL CANCER RECURRENT
     Route: 048
     Dates: start: 201610, end: 201612
  5. AVASTIN [Suspect]
     Active Substance: BEVACIZUMAB
     Indication: RECTAL CANCER RECURRENT
     Route: 042
     Dates: start: 20170228
  6. OXALIPLATINO KABI [Suspect]
     Active Substance: OXALIPLATIN
     Indication: RECTAL CANCER RECURRENT
     Route: 042
     Dates: start: 20170228
  7. FLUOROURACIL ACCORD [Concomitant]
     Active Substance: FLUOROURACIL
     Indication: RECTAL CANCER RECURRENT
     Route: 042
     Dates: start: 20170228
  8. FLUOROURACIL ACCORD [Concomitant]
     Active Substance: FLUOROURACIL
     Route: 065
     Dates: start: 20170509
  9. RAMIPRIL. [Concomitant]
     Active Substance: RAMIPRIL

REACTIONS (2)
  - Papilloedema [Recovering/Resolving]
  - Hemianopia [Recovered/Resolved]

NARRATIVE: CASE EVENT DATE: 20170317
